FAERS Safety Report 9300508 (Version 1)
Quarter: 2012Q4

REPORT INFORMATION
  Report Type: Spontaneous
  Country: US (occurrence: None)
  Receive Date: 20121116
  Receipt Date: 20121116
  Transmission Date: 20130627
  Serious: Yes (Death)
  Sender: FDA-Public Use
  Company Number: 2012-1172

PATIENT
  Age: 76 Year
  Sex: Female

DRUGS (1)
  1. KYPROLIS [Suspect]
     Indication: MULTIPLE MYELOMA
     Dates: start: 20120912, end: 20121004

REACTIONS (1)
  - Plasma cell myeloma [None]
